FAERS Safety Report 8613111-1 (Version None)
Quarter: 2012Q3

REPORT INFORMATION
  Report Type: 
  Country: None (occurrence: None)
  Receive Date: 20120822
  Receipt Date: 20120727
  Transmission Date: 20120928
  Serious: Yes (Hospitalization, Other)
  Sender: FDA-Public Use
  Company Number: US-009507513-1204USA01794

PATIENT

DRUGS (7)
  1. ASPIRIN [Concomitant]
     Indication: HYPERTENSION
     Dates: start: 19970101, end: 20120430
  2. MK-9278 [Concomitant]
     Dosage: UNK UNK, QD
     Dates: start: 19940101
  3. HORMONES (UNSPECIFIED) [Concomitant]
     Dates: start: 19970101, end: 20080101
  4. CALCIUM (UNSPECIFIED) [Concomitant]
     Dosage: 1200 MG, QD
     Dates: start: 19940101
  5. FOSAMAX [Suspect]
     Dosage: 70 MG, UNK
     Route: 048
     Dates: start: 20021201
  6. FOSAMAX [Suspect]
     Indication: OSTEOPOROSIS PROPHYLAXIS
     Dosage: 10 MG, UNK
     Route: 048
     Dates: start: 19980101, end: 20020101
  7. PRINIVIL [Concomitant]
     Indication: HYPERTENSION
     Dates: start: 19970101, end: 20120430

REACTIONS (12)
  - SHOCK HAEMORRHAGIC [None]
  - ANXIETY [None]
  - ADVERSE EVENT [None]
  - TOOTH FRACTURE [None]
  - ANGER [None]
  - BLOOD CHOLESTEROL INCREASED [None]
  - LOW TURNOVER OSTEOPATHY [None]
  - BONE DISORDER [None]
  - BURSITIS [None]
  - DEPRESSION [None]
  - FEMUR FRACTURE [None]
  - TOOTH DISORDER [None]
